FAERS Safety Report 6307458-1 (Version None)
Quarter: 2009Q3

REPORT INFORMATION
  Report Type: 
  Country: None (occurrence: None)
  Receive Date: 20090813
  Receipt Date: 20090708
  Transmission Date: 20100115
  Serious: Yes (Other)
  Sender: FDA-Public Use
  Company Number: US-BRISTOL-MYERS SQUIBB COMPANY-14695050

PATIENT
  Age: 70 Year
  Sex: Female
  Weight: 45 kg

DRUGS (9)
  1. IXEMPRA KIT [Suspect]
     Indication: BREAST CANCER
     Route: 042
     Dates: start: 20090309, end: 20090309
  2. XELODA [Suspect]
     Indication: BREAST CANCER
     Route: 048
     Dates: end: 20090416
  3. ZOFRAN [Concomitant]
  4. DECADRON [Concomitant]
  5. BENADRYL [Concomitant]
  6. OXYCONTIN [Concomitant]
  7. HYDROCHLOROTHIAZIDE [Concomitant]
  8. ASPIRIN [Concomitant]
  9. CARTIA XT [Concomitant]

REACTIONS (1)
  - PALMAR-PLANTAR ERYTHRODYSAESTHESIA SYNDROME [None]
